FAERS Safety Report 8539781-4 (Version None)
Quarter: 2012Q3

REPORT INFORMATION
  Report Type: 
  Country: None (occurrence: None)
  Receive Date: 20120726
  Receipt Date: 20111229
  Transmission Date: 20120928
  Serious: No
  Sender: FDA-Public Use
  Company Number: US-MYLANLABS-2012S1000077

PATIENT
  Age: 86 Year
  Sex: Female

DRUGS (1)
  1. CLONIDINE HYDROCHLORIDE [Suspect]

REACTIONS (3)
  - DRY EYE [None]
  - DRY MOUTH [None]
  - JOINT SWELLING [None]
